FAERS Safety Report 11691734 (Version 1)
Quarter: 2015Q4

REPORT INFORMATION
  Report Type: Spontaneous
  Country: US (occurrence: US)
  Receive Date: 20151103
  Receipt Date: 20151103
  Transmission Date: 20160304
  Serious: Yes (Hospitalization)
  Sender: FDA-Public Use
  Company Number: US-ROCHE-1651858

PATIENT
  Age: 45 Year
  Sex: Male

DRUGS (8)
  1. ACTIVASE [Suspect]
     Active Substance: ALTEPLASE
     Indication: PULMONARY EMBOLISM
     Route: 065
  2. FUROSEMIDE. [Concomitant]
     Active Substance: FUROSEMIDE
  3. HEPARIN [Concomitant]
     Active Substance: HEPARIN SODIUM
  4. FENTANYL. [Concomitant]
     Active Substance: FENTANYL
  5. OXYGEN. [Concomitant]
     Active Substance: OXYGEN
     Indication: PULMONARY EMBOLISM
  6. ROCURONIUM [Concomitant]
     Active Substance: ROCURONIUM BROMIDE
  7. HEPARIN [Concomitant]
     Active Substance: HEPARIN SODIUM
     Route: 065
  8. EPINEPHRINE. [Concomitant]
     Active Substance: EPINEPHRINE
     Indication: PULMONARY EMBOLISM

REACTIONS (4)
  - Skin discolouration [Unknown]
  - Pulmonary embolism [Unknown]
  - Loss of consciousness [Unknown]
  - No therapeutic response [Unknown]

NARRATIVE: CASE EVENT DATE: 20151021
